FAERS Safety Report 10623617 (Version 1)
Quarter: 2014Q4

REPORT INFORMATION
  Report Type: Spontaneous
  Country: US (occurrence: US)
  Receive Date: 20141203
  Receipt Date: 20141203
  Transmission Date: 20150529
  Serious: Yes (Hospitalization)
  Sender: FDA-Public Use
  Company Number: PHHY2014US155913

PATIENT
  Age: 33 Year
  Sex: Male

DRUGS (2)
  1. LOPERAMIDE [Suspect]
     Active Substance: LOPERAMIDE
     Indication: PRODUCT USED FOR UNKNOWN INDICATION
     Dosage: 140 MG, UNK
     Route: 065
  2. LOPERAMIDE [Suspect]
     Active Substance: LOPERAMIDE
     Dosage: 35 DF, UNK
     Route: 065

REACTIONS (5)
  - Sinus rhythm [Recovered/Resolved]
  - Panic reaction [Recovered/Resolved]
  - Chest discomfort [Recovered/Resolved]
  - Drug abuse [Recovered/Resolved]
  - Anxiety [Recovered/Resolved]
